FAERS Safety Report 6204323-5 (Version None)
Quarter: 2009Q2

REPORT INFORMATION
  Report Type: 
  Country: None (occurrence: None)
  Receive Date: 20090518
  Receipt Date: 20090128
  Transmission Date: 20091009
  Serious: No
  Sender: FDA-Public Use
  Company Number: WAES 0901USA04177

PATIENT
  Age: 65 Year
  Sex: Male

DRUGS (9)
  1. JANUVIA [Suspect]
     Indication: TYPE 2 DIABETES MELLITUS
     Dosage: 100 MG/DAILY/PO
     Route: 048
     Dates: start: 20090101
  2. GLUCOPHAGE [Suspect]
  3. COREG [Concomitant]
  4. CRESTOR [Concomitant]
  5. GLUCOTROL [Concomitant]
  6. PAXIL [Concomitant]
  7. PERCOCET [Concomitant]
  8. LISINOPRIL [Concomitant]
  9. METHADONE HCL [Concomitant]

REACTIONS (4)
  - BLOOD GLUCOSE DECREASED [None]
  - INSOMNIA [None]
  - PRURITUS [None]
  - SHOCK HYPOGLYCAEMIC [None]
